FAERS Safety Report 9365464 (Version 1)
Quarter: 2013Q2

REPORT INFORMATION
  Report Type: Spontaneous
  Country: GB (occurrence: GB)
  Receive Date: 20130625
  Receipt Date: 20130625
  Transmission Date: 20140414
  Serious: Yes (Life-Threatening, Hospitalization, Other)
  Sender: FDA-Public Use
  Company Number: GB-009507513-0803GBR00029

PATIENT
  Age: 88 Year
  Sex: Female
  Weight: 63.5 kg

DRUGS (7)
  1. SIMVASTATIN [Suspect]
     Indication: BLOOD CHOLESTEROL INCREASED
     Dosage: 40 MG, QD
     Route: 048
     Dates: start: 2005, end: 2005
  2. SIMVASTATIN [Suspect]
     Indication: ANGINA PECTORIS
  3. IMDUR [Concomitant]
     Indication: ANGINA PECTORIS
     Dosage: 60 MG, QD
     Route: 048
  4. ASPIRIN [Concomitant]
     Indication: ANGINA PECTORIS
     Dosage: 75 MG, QD
  5. RAMIPRIL [Concomitant]
     Indication: HYPERTENSION
     Dosage: 5 MG, QD
  6. GTN [Concomitant]
     Indication: ANGINA PECTORIS
     Dosage: 400 MICROGRAM, PRN
  7. FUROSEMIDE [Concomitant]
     Indication: HYPERTENSION
     Dosage: 20 MG, QD
     Route: 048

REACTIONS (1)
  - Acute myocardial infarction [Recovered/Resolved]
